FAERS Safety Report 9071511 (Version 1)
Quarter: 2013Q1

REPORT INFORMATION
  Report Type: Spontaneous
  Country: US (occurrence: US)
  Receive Date: 20130206
  Receipt Date: 20130206
  Transmission Date: 20140127
  Serious: No
  Sender: FDA-Public Use
  Company Number: US-ALLERGAN-1211906US

PATIENT
  Age: 77 Year
  Sex: Female

DRUGS (2)
  1. RESTASIS? [Suspect]
     Indication: DRY EYE
     Dosage: 2 GTT, QAM
     Route: 047
     Dates: end: 201208
  2. TEARS [Concomitant]
     Indication: DRY EYE
     Dosage: 2 GTT, PRN
     Route: 047

REACTIONS (3)
  - Inappropriate schedule of drug administration [Unknown]
  - Rhinorrhoea [Not Recovered/Not Resolved]
  - Instillation site pain [Not Recovered/Not Resolved]
